FAERS Safety Report 13864411 (Version 1)
Quarter: 2017Q3

REPORT INFORMATION
  Report Type: Spontaneous
  Country: IT (occurrence: IT)
  Receive Date: 20170814
  Receipt Date: 20170814
  Transmission Date: 20171127
  Serious: Yes (Hospitalization)
  Sender: FDA-Public Use
  Company Number: IT-TEVA-661220ACC

PATIENT
  Age: 58 Year
  Sex: Female

DRUGS (7)
  1. CYCLOPHOSPHAMIDE. [Concomitant]
     Active Substance: CYCLOPHOSPHAMIDE
  2. PEGYLATED LIPOSOMAL DOXORUBICN HCL [Concomitant]
  3. ZOLEDRONIC ACID [Suspect]
     Active Substance: ZOLEDRONIC ACID
     Indication: BREAST CANCER METASTATIC
     Route: 042
     Dates: start: 20060101, end: 20120101
  4. EXEMESTANE. [Concomitant]
     Active Substance: EXEMESTANE
     Dates: start: 2001
  5. ANASTROZOLE. [Concomitant]
     Active Substance: ANASTROZOLE
  6. DOCETAXEL. [Concomitant]
     Active Substance: DOCETAXEL
  7. CAPECITABINE. [Concomitant]
     Active Substance: CAPECITABINE

REACTIONS (5)
  - Osteonecrosis of jaw [Recovered/Resolved]
  - Pain [Recovered/Resolved]
  - Oral disorder [Recovered/Resolved]
  - Oral cavity fistula [Recovered/Resolved]
  - Dysphagia [Recovered/Resolved]

NARRATIVE: CASE EVENT DATE: 20120101
